FAERS Safety Report 9857338 (Version 2)
Quarter: 2014Q1

REPORT INFORMATION
  Report Type: Spontaneous
  Country: BR (occurrence: BR)
  Receive Date: 20140130
  Receipt Date: 20140303
  Transmission Date: 20141002
  Serious: Yes (Other)
  Sender: FDA-Public Use
  Company Number: PHHY2014BR011463

PATIENT
  Age: 25 Year
  Sex: Female

DRUGS (3)
  1. TEGRETOL-XR [Suspect]
     Indication: ISCHAEMIA
     Dosage: 4 DF (TABLETS), DAILY
     Route: 048
  2. GARDENAL//PHENOBARBITAL [Concomitant]
     Indication: CONVULSION
     Dosage: 110 DRP, DAILY (SINCE 1 YEAR OLD)
     Route: 048
  3. GARDENAL//PHENOBARBITAL [Concomitant]
     Indication: EPILEPSY

REACTIONS (4)
  - Convulsion [Not Recovered/Not Resolved]
  - Epilepsy [Not Recovered/Not Resolved]
  - Petit mal epilepsy [Not Recovered/Not Resolved]
  - Loss of consciousness [Not Recovered/Not Resolved]
